FAERS Safety Report 17756798 (Version 2)
Quarter: 2020Q2

REPORT INFORMATION
  Report Type: Not Available
  Country: US (occurrence: US)
  Receive Date: 20200507
  Receipt Date: 20200604
  Transmission Date: 20200714
  Serious: No
  Sender: FDA-Public Use
  Company Number: US-NEUROCRINE BIOSCIENCES INC.-2020NBI01412

PATIENT
  Age: 66 Year
  Sex: Female

DRUGS (20)
  1. TIZANIDINE. [Concomitant]
     Active Substance: TIZANIDINE
  2. XIIDRA [Concomitant]
     Active Substance: LIFITEGRAST
     Route: 047
  3. MULTIPLE VITAMIN [Concomitant]
     Active Substance: VITAMINS
  4. INGREZZA [Suspect]
     Active Substance: VALBENAZINE
     Route: 048
     Dates: start: 202004
  5. HYDROCHLOROTHIAZIDE. [Concomitant]
     Active Substance: HYDROCHLOROTHIAZIDE
     Route: 048
  6. IBUPROFEN. [Concomitant]
     Active Substance: IBUPROFEN
     Route: 048
  7. LINZESS [Concomitant]
     Active Substance: LINACLOTIDE
     Route: 048
  8. GABAPENTIN. [Concomitant]
     Active Substance: GABAPENTIN
     Route: 048
  9. OXYBUTYNIN. [Concomitant]
     Active Substance: OXYBUTYNIN CHLORIDE
  10. ACETAMINOPHEN. [Concomitant]
     Active Substance: ACETAMINOPHEN
     Route: 048
  11. NIACIN. [Concomitant]
     Active Substance: NIACIN
  12. CALCIUM WITH VITAMIN D [Concomitant]
     Active Substance: CALCIUM\VITAMIN D
  13. OMEPRAZOLE. [Concomitant]
     Active Substance: OMEPRAZOLE
  14. METFORMIN [Concomitant]
     Active Substance: METFORMIN HYDROCHLORIDE
     Route: 048
  15. VITAMIN C [Concomitant]
     Active Substance: ASCORBIC ACID
  16. INGREZZA [Suspect]
     Active Substance: VALBENAZINE
     Indication: TARDIVE DYSKINESIA
     Route: 048
     Dates: start: 202004, end: 202004
  17. FLUTICASONE. [Concomitant]
     Active Substance: FLUTICASONE
  18. ATORVASTATIN [Concomitant]
     Active Substance: ATORVASTATIN
     Route: 048
  19. MAGNESIUM [Concomitant]
     Active Substance: MAGNESIUM
     Route: 048
  20. ENALAPRIL [Concomitant]
     Active Substance: ENALAPRIL
     Route: 048

REACTIONS (1)
  - Pruritus [Not Recovered/Not Resolved]

NARRATIVE: CASE EVENT DATE: 202004
